FAERS Safety Report 9363824 (Version 1)
Quarter: 2013Q2

REPORT INFORMATION
  Report Type: Spontaneous
  Country: GB (occurrence: GB)
  Receive Date: 20130624
  Receipt Date: 20130624
  Transmission Date: 20140414
  Serious: Yes (Other)
  Sender: FDA-Public Use
  Company Number: GB-MYLANLABS-2013S1008325

PATIENT
  Age: 62 Year
  Sex: Female

DRUGS (2)
  1. SIMVASTATIN [Suspect]
     Indication: BLOOD CHOLESTEROL
     Route: 048
     Dates: start: 20080709, end: 20121206
  2. SIMVASTATIN [Suspect]
     Indication: BLOOD CHOLESTEROL
     Dates: start: 20130327

REACTIONS (3)
  - Alopecia areata [Recovering/Resolving]
  - Alopecia totalis [Recovering/Resolving]
  - Loss of consciousness [Unknown]
